FAERS Safety Report 15676163 (Version 1)
Quarter: 2018Q4

REPORT INFORMATION
  Report Type: Spontaneous
  Country: KR (occurrence: KR)
  Receive Date: 20181130
  Receipt Date: 20181130
  Transmission Date: 20190205
  Serious: Yes (Death, Hospitalization, Other)
  Sender: FDA-Public Use
  Company Number: KR-009507513-1811KOR010734

PATIENT
  Sex: Male

DRUGS (2)
  1. KEYTRUDA [Suspect]
     Active Substance: PEMBROLIZUMAB
     Indication: BILE DUCT CANCER
     Dosage: 200 MILLIGRAM, Q3W
     Route: 042
     Dates: start: 20180910, end: 20180910
  2. KEYTRUDA [Suspect]
     Active Substance: PEMBROLIZUMAB
     Dosage: 200 MILLIGRAM, Q3W
     Route: 042
     Dates: start: 20180930, end: 20180930

REACTIONS (10)
  - Depressed mood [Unknown]
  - Product use in unapproved indication [Unknown]
  - Cerebellar infarction [Unknown]
  - Klebsiella infection [Unknown]
  - Malignant neoplasm progression [Fatal]
  - Melaena [Recovered/Resolved]
  - Haemobilia [Recovering/Resolving]
  - Anaemia [Recovering/Resolving]
  - Spinal cord compression [Recovering/Resolving]
  - Somnolence [Unknown]

NARRATIVE: CASE EVENT DATE: 2018
